FAERS Safety Report 9763066 (Version 1)
Quarter: 2013Q4

REPORT INFORMATION
  Report Type: Spontaneous
  Country: US (occurrence: US)
  Receive Date: 20131216
  Receipt Date: 20131216
  Transmission Date: 20140711
  Serious: No
  Sender: FDA-Public Use
  Company Number: US-BIOGENIDEC-2013BI105983

PATIENT
  Age: 58 Year
  Sex: Female

DRUGS (1)
  1. TECFIDERA [Suspect]
     Indication: MULTIPLE SCLEROSIS
     Route: 048
     Dates: start: 20131006

REACTIONS (5)
  - Abdominal discomfort [Not Recovered/Not Resolved]
  - Cold sweat [Unknown]
  - Middle insomnia [Not Recovered/Not Resolved]
  - Feeling abnormal [Unknown]
  - Nausea [Unknown]
